FAERS Safety Report 20434142 (Version 1)
Quarter: 2022Q1

REPORT INFORMATION
  Report Type: Spontaneous
  Country: None (occurrence: US)
  Receive Date: 20220206
  Receipt Date: 20220206
  Transmission Date: 20220423
  Serious: No
  Sender: FDA-Public Use
  Company Number: US-Ascend Therapeutics US, LLC-2124645

PATIENT
  Sex: Female

DRUGS (4)
  1. ESTROGEL [Suspect]
     Active Substance: ESTRADIOL
     Indication: Hormone replacement therapy
     Route: 065
     Dates: start: 2018, end: 202201
  2. ESTROGEL [Suspect]
     Active Substance: ESTRADIOL
  3. ESTROGEL [Suspect]
     Active Substance: ESTRADIOL
     Route: 065
     Dates: start: 2018, end: 202201
  4. ESTROGEL [Suspect]
     Active Substance: ESTRADIOL
     Route: 065
     Dates: start: 202201

REACTIONS (7)
  - Hot flush [Recovering/Resolving]
  - Affect lability [Recovered/Resolved]
  - Overdose [None]
  - Product formulation issue [None]
  - Incorrect dose administered [None]
  - Therapeutic product effect decreased [None]
  - Product dispensing issue [None]

NARRATIVE: CASE EVENT DATE: 20180101
